FAERS Safety Report 15271210 (Version 1)
Quarter: 2018Q3

REPORT INFORMATION
  Report Type: Spontaneous
  Country: US (occurrence: US)
  Receive Date: 20180727
  Receipt Date: 20180727
  Transmission Date: 20181010
  Serious: Yes (Hospitalization)
  Sender: FDA-Public Use
  Company Number: None

PATIENT
  Age: 66 Year
  Sex: Male

DRUGS (16)
  1. ALBUTEROL. [Concomitant]
     Active Substance: ALBUTEROL
  2. WARFARIN [Concomitant]
     Active Substance: WARFARIN
  3. DIGOXIN. [Concomitant]
     Active Substance: DIGOXIN
  4. FLUTICASONE. [Concomitant]
     Active Substance: FLUTICASONE
  5. ASPIRIN. [Suspect]
     Active Substance: ASPIRIN
     Route: 048
  6. ASPIRIN. [Concomitant]
     Active Substance: ASPIRIN
  7. METOPROLOL SUCCINATE. [Concomitant]
     Active Substance: METOPROLOL SUCCINATE
  8. ATORVASTATIN [Concomitant]
     Active Substance: ATORVASTATIN
  9. MAGNESIUM OXIDE. [Concomitant]
     Active Substance: MAGNESIUM OXIDE
  10. OMEPRAZOLE. [Concomitant]
     Active Substance: OMEPRAZOLE
  11. LORAZEPAM. [Concomitant]
     Active Substance: LORAZEPAM
  12. SIMETHICONE (DIMETHICONE) [Concomitant]
     Active Substance: DIMETHICONE
  13. WARFARIN [Suspect]
     Active Substance: WARFARIN
     Indication: ANTICOAGULANT THERAPY
     Route: 048
     Dates: start: 20161202, end: 20180520
  14. CETIRIZINE [Concomitant]
     Active Substance: CETIRIZINE HYDROCHLORIDE
  15. FERROUS SULFATE. [Concomitant]
     Active Substance: FERROUS SULFATE
  16. IPRATROPIUM [Concomitant]
     Active Substance: IPRATROPIUM

REACTIONS (7)
  - Brain oedema [None]
  - Cerebral haemorrhage [None]
  - Vomiting [None]
  - Nausea [None]
  - Vision blurred [None]
  - Ataxia [None]
  - Headache [None]

NARRATIVE: CASE EVENT DATE: 20180520
